FAERS Safety Report 4365490-1 (Version None)
Quarter: 2004Q2

REPORT INFORMATION
  Report Type: 
  Country: None (occurrence: None)
  Receive Date: 20040526
  Receipt Date: 20031106
  Transmission Date: 20050107
  Serious: Yes (Hospitalization)
  Sender: FDA-Public Use
  Company Number: IE-MERCK-0311GBR00060

PATIENT
  Age: 70 Year
  Sex: Female
  Weight: 38 kg

DRUGS (2)
  1. FOSAMAX [Suspect]
     Indication: OSTEOPOROSIS
     Route: 048
     Dates: start: 20030407
  2. DIAZEPAM [Concomitant]
     Indication: ANXIETY
     Route: 065

REACTIONS (6)
  - CATATONIA [None]
  - CONSTIPATION [None]
  - DEPRESSION [None]
  - DIZZINESS [None]
  - FEELING ABNORMAL [None]
  - MENTAL DISORDER [None]
